FAERS Safety Report 9945541 (Version 1)
Quarter: 2014Q1

REPORT INFORMATION
  Report Type: Report from Study
  Country: US (occurrence: US)
  Receive Date: 20140303
  Receipt Date: 20140303
  Transmission Date: 20141002
  Serious: No
  Sender: FDA-Public Use
  Company Number: US-ABBVIE-13P-163-1049585-00

PATIENT
  Age: 50 Year
  Sex: Female

DRUGS (2)
  1. HUMIRA [Suspect]
     Indication: COLITIS ULCERATIVE
     Route: 058
     Dates: start: 20121113
  2. PREDNISONE [Concomitant]
     Indication: COLITIS ULCERATIVE
     Dosage: INCREASED TO 20 MG DAILY

REACTIONS (1)
  - Colitis ulcerative [Unknown]
